FAERS Safety Report 15082310 (Version 1)
Quarter: 2018Q2

REPORT INFORMATION
  Report Type: Spontaneous
  Country: US (occurrence: US)
  Receive Date: 20180607
  Receipt Date: 20180607
  Transmission Date: 20180711
  Serious: Yes (Other)
  Sender: FDA-Public Use
  Company Number: None

PATIENT

DRUGS (1)
  1. INVEGA SUSTENNA [Suspect]
     Active Substance: PALIPERIDONE PALMITATE
     Dosage: ?          OTHER FREQUENCY:PER RECOMMENDED;?
     Route: 030
     Dates: start: 20180513, end: 20180525

REACTIONS (2)
  - Injury associated with device [None]
  - Device malfunction [None]
